FAERS Safety Report 18555815 (Version 2)
Quarter: 2021Q1

REPORT INFORMATION
  Report Type: Spontaneous
  Country: US (occurrence: US)
  Receive Date: 20201127
  Receipt Date: 20210309
  Transmission Date: 20210419
  Serious: No
  Sender: FDA-Public Use
  Company Number: US-CYCLE PHARMACEUTICALS LTD-2020-CYC-000028

PATIENT
  Sex: Male

DRUGS (2)
  1. NITISINONE [Suspect]
     Active Substance: NITISINONE
     Indication: TYROSINAEMIA
     Dosage: 1.95 ML, BID
     Route: 048
     Dates: start: 20200928
  2. NITISINONE [Suspect]
     Active Substance: NITISINONE
     Dosage: 2 MG
     Route: 048
     Dates: start: 20200928

REACTIONS (2)
  - Infantile spitting up [Unknown]
  - Infantile vomiting [Unknown]
